FAERS Safety Report 20321711 (Version 1)
Quarter: 2022Q1

REPORT INFORMATION
  Report Type: Spontaneous
  Country: US (occurrence: None)
  Receive Date: 20220111
  Receipt Date: 20220111
  Transmission Date: 20220423
  Serious: Yes (Hospitalization)
  Sender: FDA-Public Use
  Company Number: None

PATIENT
  Age: 48 Year
  Sex: Male
  Weight: 84.6 kg

DRUGS (5)
  1. CARBOPLATIN [Suspect]
     Active Substance: CARBOPLATIN
     Dates: end: 20211219
  2. ETOPOSIDE [Suspect]
     Active Substance: ETOPOSIDE
     Dates: end: 20211219
  3. FILGRASTIM [Suspect]
     Active Substance: FILGRASTIM
     Dates: end: 20211225
  4. IFOSFAMIDE [Suspect]
     Active Substance: IFOSFAMIDE
     Dates: end: 20211205
  5. TAXOL [Suspect]
     Active Substance: PACLITAXEL
     Dates: end: 20211203

REACTIONS (2)
  - Pancytopenia [None]
  - Body temperature increased [None]

NARRATIVE: CASE EVENT DATE: 20211225
